FAERS Safety Report 5961695-4 (Version None)
Quarter: 2008Q4

REPORT INFORMATION
  Report Type: 
  Country: None (occurrence: None)
  Receive Date: 20081121
  Receipt Date: 20081114
  Transmission Date: 20090506
  Serious: Yes (Other)
  Sender: FDA-Public Use
  Company Number: CA-JNJFOC-20081103781

PATIENT
  Sex: Female
  Weight: 54 kg

DRUGS (2)
  1. REMICADE [Suspect]
     Dosage: 10 INFUSIONS ON UNKNOWN DATES
     Route: 042
  2. REMICADE [Suspect]
     Indication: CROHN'S DISEASE
     Route: 042

REACTIONS (4)
  - CHEILITIS [None]
  - EYE PAIN [None]
  - ORAL CANDIDIASIS [None]
  - SKIN LESION [None]
